FAERS Safety Report 8792179 (Version 2)
Quarter: 2015Q1

REPORT INFORMATION
  Report Type: Report from Study
  Country: US (occurrence: US)
  Receive Date: 20120918
  Receipt Date: 20150312
  Transmission Date: 20150721
  Serious: Yes (Death)
  Sender: FDA-Public Use
  Company Number: US-ROCHE-1123610

PATIENT
  Sex: Female
  Weight: 71.7 kg

DRUGS (6)
  1. DILANTIN [Concomitant]
     Active Substance: PHENYTOIN
  2. DIOVAN [Concomitant]
     Active Substance: VALSARTAN
  3. AVASTIN [Suspect]
     Active Substance: BEVACIZUMAB
     Indication: BRAIN NEOPLASM MALIGNANT
     Route: 042
     Dates: start: 20060228
  4. HYDROCHLOROTHIAZIDE. [Concomitant]
     Active Substance: HYDROCHLOROTHIAZIDE
  5. DECADRON [Concomitant]
     Active Substance: DEXAMETHASONE
  6. TEMODAR [Concomitant]
     Active Substance: TEMOZOLOMIDE

REACTIONS (2)
  - Death [Fatal]
  - Off label use [Unknown]
